FAERS Safety Report 5360314-8 (Version None)
Quarter: 2007Q2

REPORT INFORMATION
  Report Type: 
  Country: None (occurrence: None)
  Receive Date: 20070612
  Receipt Date: 20070605
  Transmission Date: 20071010
  Serious: Yes (Other)
  Sender: FDA-Public Use
  Company Number: 2007BI004275

PATIENT
  Sex: Male

DRUGS (9)
  1. NATALIZUMAB [Suspect]
     Indication: DRUG USE FOR UNKNOWN INDICATION
     Dosage: 300 MG; QM; IV
     Route: 042
     Dates: start: 20061024
  2. ADDERALL 10 [Concomitant]
  3. BACLOFEN [Concomitant]
  4. KLONOPIN [Concomitant]
  5. FLOMAX [Concomitant]
  6. ANTIVERT [Concomitant]
  7. LEXAPRO [Concomitant]
  8. ARICEPT [Concomitant]
  9. FLONASE [Concomitant]

REACTIONS (2)
  - SKIN LESION [None]
  - SQUAMOUS CELL CARCINOMA [None]
